FAERS Safety Report 5150916-6 (Version None)
Quarter: 2006Q4

REPORT INFORMATION
  Report Type: 
  Country: None (occurrence: None)
  Receive Date: 20061114
  Receipt Date: 20060606
  Transmission Date: 20070319
  Serious: Yes (Death)
  Sender: FDA-Public Use
  Company Number: RU-BOEHRINGER INGELHEIM GMBH, GERMANY-2006-AP-00252AP

PATIENT
  Sex: Male

DRUGS (4)
  1. SPIRIVA [Suspect]
     Indication: CHRONIC OBSTRUCTIVE PULMONARY DISEASE
     Route: 055
     Dates: start: 20031114, end: 20040724
  2. SALBUTAMOL [Suspect]
     Indication: DYSPNOEA
     Route: 055
  3. SALMETEROL XINAFOATE [Concomitant]
     Indication: CHRONIC OBSTRUCTIVE PULMONARY DISEASE
     Dates: start: 20031030, end: 20031113
  4. PREDNISOLONE [Concomitant]
     Indication: CHRONIC OBSTRUCTIVE PULMONARY DISEASE
     Dates: start: 20031030, end: 20031113

REACTIONS (2)
  - CARDIOPULMONARY FAILURE [None]
  - OVERDOSE [None]
